FAERS Safety Report 12987765 (Version 2)
Quarter: 2017Q1

REPORT INFORMATION
  Report Type: Spontaneous
  Country: US (occurrence: US)
  Receive Date: 20161130
  Receipt Date: 20170227
  Transmission Date: 20170428
  Serious: Yes (Hospitalization, Other)
  Sender: FDA-Public Use
  Company Number: US-OTSUKA-2016_027831

PATIENT
  Sex: Male

DRUGS (25)
  1. PEMBROLIZUMAB. [Concomitant]
     Active Substance: PEMBROLIZUMAB
     Indication: SMALL CELL LUNG CANCER
     Dosage: UNK
     Route: 065
  2. DENOSUMAB [Concomitant]
     Active Substance: DENOSUMAB
     Indication: METASTASES TO BONE
  3. OCEAN SALINE NASAL SPRAY [Concomitant]
     Active Substance: SODIUM CHLORIDE
     Indication: NASAL CONGESTION
     Dosage: 1 SPRAY INTO RIGHT NOSTRIL AS NEEDED
     Route: 045
  4. DELTASONE [Concomitant]
     Active Substance: PREDNISONE
     Indication: PRODUCT USED FOR UNKNOWN INDICATION
     Dosage: 7 TABS, QD FOR 1 WEEK
     Route: 065
  5. DELTASONE [Concomitant]
     Active Substance: PREDNISONE
     Dosage: 5 TABS, QD FOR 1 WEEK
     Route: 065
  6. ZOFRAN-ODT [Concomitant]
     Indication: NAUSEA
     Dosage: 8 MG, TID (EVERY 8 HOURS AS NEEDED)
     Route: 048
  7. COMBIVENT RESPIMAT [Concomitant]
     Active Substance: ALBUTEROL SULFATE\IPRATROPIUM BROMIDE
     Indication: WHEEZING
     Dosage: 1 PUFF EVERY 4 HOURS AS NEEDED
     Route: 045
  8. DENOSUMAB [Concomitant]
     Active Substance: DENOSUMAB
     Indication: SMALL CELL LUNG CANCER
     Dosage: UNK
     Route: 065
  9. FLOMAX [Concomitant]
     Active Substance: TAMSULOSIN HYDROCHLORIDE
     Indication: PRODUCT USED FOR UNKNOWN INDICATION
     Dosage: 0.4 MG, QD
     Route: 048
  10. BACTRIM/CO-TRIMOXAZOLE DS [Concomitant]
     Indication: PRODUCT USED FOR UNKNOWN INDICATION
     Dosage: 1 DF, TIW
     Route: 048
  11. DELTASONE [Concomitant]
     Active Substance: PREDNISONE
     Dosage: 3 TABS, QD FOR 1 WEEK
     Route: 065
  12. DELTASONE [Concomitant]
     Active Substance: PREDNISONE
     Dosage: 1/2 TAB, QD FOR 1 WEEK
     Route: 065
  13. SAMSCA [Suspect]
     Active Substance: TOLVAPTAN
     Indication: HYPONATRAEMIA
     Dosage: 15 MG, QD
     Route: 048
     Dates: start: 20150715
  14. PROTONIX [Concomitant]
     Active Substance: PANTOPRAZOLE SODIUM
     Indication: PRODUCT USED FOR UNKNOWN INDICATION
     Dosage: 1 DF, QD
     Route: 048
  15. SAMSCA [Suspect]
     Active Substance: TOLVAPTAN
     Indication: INAPPROPRIATE ANTIDIURETIC HORMONE SECRETION
  16. PEMBROLIZUMAB. [Concomitant]
     Active Substance: PEMBROLIZUMAB
     Indication: METASTASES TO BONE
  17. DELTASONE [Concomitant]
     Active Substance: PREDNISONE
     Dosage: 4 TABS, QD FOR 1 WEEK
     Route: 065
  18. DELTASONE [Concomitant]
     Active Substance: PREDNISONE
     Dosage: 3 TABS, QD FOR 1 WEEK
     Route: 065
  19. DELTASONE [Concomitant]
     Active Substance: PREDNISONE
     Dosage: 1 TAB, QD FOR 1 WEEK
     Route: 065
  20. ZOLOFT [Concomitant]
     Active Substance: SERTRALINE HYDROCHLORIDE
     Indication: PRODUCT USED FOR UNKNOWN INDICATION
     Dosage: 1 DF, QD
     Route: 048
  21. DELTASONE [Concomitant]
     Active Substance: PREDNISONE
     Dosage: 2 TABS, QD FOR 1 WEEK
     Route: 065
  22. ELIQUIS [Concomitant]
     Active Substance: APIXABAN
     Indication: PRODUCT USED FOR UNKNOWN INDICATION
     Dosage: 1 DF, BID
     Route: 048
  23. VITAMIN D [Concomitant]
     Active Substance: CHOLECALCIFEROL
     Indication: PRODUCT USED FOR UNKNOWN INDICATION
     Dosage: 1000 MG, QD
     Route: 048
  24. FOLVITE [Concomitant]
     Active Substance: FOLIC ACID
     Indication: PRODUCT USED FOR UNKNOWN INDICATION
     Dosage: 1 MG, QD
     Route: 048
  25. ATIVAN [Concomitant]
     Active Substance: LORAZEPAM
     Indication: NAUSEA
     Dosage: 0.5 MG (1-2 TABS Q6HR), PRN
     Route: 065

REACTIONS (10)
  - Acute respiratory failure [Recovered/Resolved]
  - Hypoxia [Recovered/Resolved]
  - Pleuritic pain [Recovered/Resolved]
  - Pulmonary embolism [Recovering/Resolving]
  - Dyspnoea [Recovered/Resolved]
  - Incorrect drug administration duration [Unknown]
  - Pneumonia [Unknown]
  - Radiation pneumonitis [Recovering/Resolving]
  - Chronic obstructive pulmonary disease [Unknown]
  - Dyspnoea exertional [Not Recovered/Not Resolved]
